FAERS Safety Report 23053471 (Version 3)
Quarter: 2024Q4

REPORT INFORMATION
  Report Type: Report from Study
  Country: US (occurrence: US)
  Receive Date: 20231011
  Receipt Date: 20241210
  Transmission Date: 20250115
  Serious: No
  Sender: NOVARTIS
  Company Number: US-002147023-NVSC2023US215962

PATIENT
  Sex: Female
  Weight: 60.33 kg

DRUGS (2)
  1. COSENTYX [Suspect]
     Active Substance: SECUKINUMAB
     Indication: Psoriasis
     Dosage: UNK UNK, QMO
     Route: 058
     Dates: start: 202212
  2. COSENTYX [Suspect]
     Active Substance: SECUKINUMAB
     Indication: Psoriatic arthropathy
     Dosage: 300 MG, QMO
     Route: 058
     Dates: start: 202210

REACTIONS (6)
  - Psoriasis [Not Recovered/Not Resolved]
  - Pruritus [Unknown]
  - Skin exfoliation [Unknown]
  - Papule [Unknown]
  - Erythema [Unknown]
  - Therapeutic product effect incomplete [Unknown]
